FAERS Safety Report 7451044-7 (Version None)
Quarter: 2011Q2

REPORT INFORMATION
  Report Type: 
  Country: None (occurrence: None)
  Receive Date: 20110502
  Receipt Date: 20110427
  Transmission Date: 20111010
  Serious: Yes (Other)
  Sender: FDA-Public Use
  Company Number: ES-ROCHE-773904

PATIENT
  Age: 32 Year
  Sex: Female

DRUGS (5)
  1. VALIUM [Suspect]
     Route: 048
     Dates: start: 20101101, end: 20110226
  2. DICLOFENAC [Suspect]
     Route: 048
     Dates: start: 20101101, end: 20110226
  3. ROBAXISAL [Suspect]
     Route: 048
     Dates: start: 20101101, end: 20110226
  4. LEVOTHROID [Concomitant]
     Indication: HYPOTHYROIDISM
     Route: 048
  5. PANTECTA [Suspect]
     Route: 048
     Dates: start: 20101101, end: 20110226

REACTIONS (2)
  - HEPATITIS [None]
  - HYPERBILIRUBINAEMIA [None]
